FAERS Safety Report 26168366 (Version 1)
Quarter: 2025Q4

REPORT INFORMATION
  Report Type: Spontaneous
  Country: EU (occurrence: EU)
  Receive Date: 20251217
  Receipt Date: 20251217
  Transmission Date: 20260118
  Serious: Yes (Hospitalization)
  Sender: RANBAXY
  Company Number: EU-SUN PHARMACEUTICAL INDUSTRIES LTD-2025RR-542033

PATIENT
  Age: 65 Year
  Sex: Male

DRUGS (19)
  1. PANTOPRAZOLE [Suspect]
     Active Substance: PANTOPRAZOLE
     Indication: Product used for unknown indication
     Dosage: 40 MILLIGRAM
     Route: 048
  2. CLOPIDOGREL [Suspect]
     Active Substance: CLOPIDOGREL BISULFATE
     Indication: Product used for unknown indication
     Dosage: UNK
     Route: 065
  3. ARIPIPRAZOLE [Suspect]
     Active Substance: ARIPIPRAZOLE
     Indication: Product used for unknown indication
     Dosage: 10 MILLIGRAM
     Route: 048
  4. BISOPROLOL [Suspect]
     Active Substance: BISOPROLOL
     Indication: Product used for unknown indication
     Dosage: UNK
     Route: 048
  5. DIAZEPAM [Suspect]
     Active Substance: DIAZEPAM
     Indication: Product used for unknown indication
     Dosage: 5 MILLIGRAM, DAILY
     Route: 048
  6. FORADIL [Suspect]
     Active Substance: FORMOTEROL FUMARATE
     Indication: Product used for unknown indication
     Dosage: UNK
  7. FUROSEMIDE [Suspect]
     Active Substance: FUROSEMIDE
     Indication: Product used for unknown indication
     Dosage: 20 MILLIGRAM, DAILY
     Route: 048
  8. PHENOBARBITAL [Suspect]
     Active Substance: PHENOBARBITAL
     Indication: Product used for unknown indication
     Dosage: 150 MILLIGRAM, DAILY
     Route: 048
  9. KARDEGIC [Suspect]
     Active Substance: ASPIRIN DL-LYSINE
     Indication: Product used for unknown indication
     Dosage: UNK
     Route: 065
  10. AMITRIPTYLINE HYDROCHLORIDE [Suspect]
     Active Substance: AMITRIPTYLINE HYDROCHLORIDE
     Indication: Product used for unknown indication
     Dosage: 75 MILLIGRAM, DAILY
     Route: 048
  11. ESTAZOLAM [Suspect]
     Active Substance: ESTAZOLAM
     Indication: Product used for unknown indication
     Dosage: 2 MILLIGRAM, DAILY
     Route: 048
  12. SPIRIVA [Suspect]
     Active Substance: TIOTROPIUM BROMIDE MONOHYDRATE
     Indication: Product used for unknown indication
     Dosage: UNK
  13. TAHOR [Suspect]
     Active Substance: ATORVASTATIN CALCIUM
     Indication: Product used for unknown indication
     Dosage: 10 MILLIGRAM, DAILY
     Route: 048
  14. CYAMEMAZINE [Suspect]
     Active Substance: CYAMEMAZINE
     Indication: Product used for unknown indication
     Dosage: 1 DOSAGE FORM, DAILY
     Route: 048
  15. TRIMEPRAZINE [Suspect]
     Active Substance: TRIMEPRAZINE
     Indication: Product used for unknown indication
     Dosage: 3 DOSAGE FORM, DAILY
     Route: 065
  16. TRAMADOL [Suspect]
     Active Substance: TRAMADOL
     Indication: Product used for unknown indication
     Dosage: 400 MILLIGRAM, DAILY
     Route: 048
  17. TRAMADOL [Suspect]
     Active Substance: TRAMADOL
     Dosage: 150 MILLIGRAM, DAILY
     Route: 048
  18. NITROGLYCERIN [Suspect]
     Active Substance: NITROGLYCERIN
     Indication: Product used for unknown indication
     Dosage: 1 DOSAGE FORM, DAILY
     Route: 003
  19. SILODOSIN [Suspect]
     Active Substance: SILODOSIN
     Indication: Product used for unknown indication
     Dosage: 1 DOSAGE FORM, DAILY
     Route: 048

REACTIONS (4)
  - Inappropriate antidiuretic hormone secretion [Not Recovered/Not Resolved]
  - Inappropriate antidiuretic hormone secretion [Not Recovered/Not Resolved]
  - Hyponatraemia [Not Recovered/Not Resolved]
  - Hyponatraemia [Not Recovered/Not Resolved]

NARRATIVE: CASE EVENT DATE: 20160714
